FAERS Safety Report 22931505 (Version 3)
Quarter: 2023Q4

REPORT INFORMATION
  Report Type: Spontaneous
  Country: US (occurrence: US)
  Receive Date: 20230911
  Receipt Date: 20231205
  Transmission Date: 20240110
  Serious: No
  Sender: FDA-Public Use
  Company Number: US-PFIZER INC-202300294387

PATIENT
  Sex: Female

DRUGS (1)
  1. ESTRADIOL [Suspect]
     Active Substance: ESTRADIOL
     Dosage: UNK, 2X/WEEK (APPLY 1 PATCH TOPICALLY TO THE SKIN TWO TIMES A WEEK)
     Route: 061

REACTIONS (2)
  - Drug ineffective [Unknown]
  - Hot flush [Unknown]
